FAERS Safety Report 9719423 (Version 3)
Quarter: 2013Q4

REPORT INFORMATION
  Report Type: Report from Study
  Country: AU (occurrence: AU)
  Receive Date: 20131128
  Receipt Date: 20131210
  Transmission Date: 20140711
  Serious: Yes (Hospitalization)
  Sender: FDA-Public Use
  Company Number: AU-ROCHE-1296111

PATIENT
  Age: 43 Year
  Sex: Female

DRUGS (8)
  1. ACTEMRA [Suspect]
     Indication: RHEUMATOID ARTHRITIS
     Route: 042
     Dates: start: 20131024, end: 20131121
  2. MELOXICAM [Concomitant]
     Indication: RHEUMATOID ARTHRITIS
     Route: 048
     Dates: start: 201310
  3. MELOXICAM [Concomitant]
     Route: 065
     Dates: start: 201202
  4. PANADOL OSTEO [Concomitant]
     Dosage: 2 TABLETS
     Route: 048
  5. METHOTREXATE [Concomitant]
     Indication: RHEUMATOID ARTHRITIS
     Route: 048
     Dates: start: 201303
  6. METHOTREXATE [Concomitant]
     Route: 065
     Dates: start: 201207
  7. FOLIC ACID [Concomitant]
     Route: 048
     Dates: start: 201303
  8. FOLIC ACID [Concomitant]
     Route: 065
     Dates: start: 201207

REACTIONS (4)
  - Hypersensitivity [Unknown]
  - Presyncope [Unknown]
  - Catheter site pain [Unknown]
  - Underdose [Unknown]
